FAERS Safety Report 5084799-X (Version None)
Quarter: 2006Q3

REPORT INFORMATION
  Report Type: 
  Country: None (occurrence: None)
  Receive Date: 20060815
  Receipt Date: 20060807
  Transmission Date: 20061208
  Serious: Yes (Other)
  Sender: FDA-Public Use
  Company Number: B0433333A

PATIENT
  Age: 43 Year
  Sex: Female

DRUGS (3)
  1. ALBENZA [Suspect]
     Indication: TAENIASIS
  2. DEXAMETHASONE TAB [Suspect]
     Indication: TAENIASIS
  3. CLOBAZAM (CLOBAZAM) [Suspect]
     Indication: TAENIASIS

REACTIONS (2)
  - BRAIN OEDEMA [None]
  - ENCEPHALITIS [None]
